FAERS Safety Report 9517197 (Version 2)
Quarter: 2014Q1

REPORT INFORMATION
  Report Type: Spontaneous
  Country: US (occurrence: None)
  Receive Date: 20130305
  Receipt Date: 20140306
  Transmission Date: 20141002
  Serious: Yes (Hospitalization)
  Sender: FDA-Public Use
  Company Number: 163-21880-12113537

PATIENT
  Age: 72 Year
  Sex: 0
  Weight: 103.6 kg

DRUGS (8)
  1. REVLIMID (LENALIDOMIDE) (CAPSULES) [Suspect]
     Indication: PLASMA CELL MYELOMA
     Dosage: 5 MG, 21 IN 21 D, PO
     Route: 048
     Dates: start: 201204
  2. SIMVASTATIN (SIMVASTATIN) [Concomitant]
  3. GABAPENTIN (GABAPENTIN) [Concomitant]
  4. CYMBALTA (DULOXETINE HYDROCHLORIDE) [Concomitant]
  5. PRILOSEC [Concomitant]
  6. DEXAMETHASONE (DEXAMETHASONE) [Concomitant]
  7. DIAZEPAM (DIAZEPAM) [Concomitant]
  8. ALBUTEROL MDI (SALBUTAMOL) [Concomitant]

REACTIONS (1)
  - Pneumonia [None]
